FAERS Safety Report 24731103 (Version 2)
Quarter: 2024Q4

REPORT INFORMATION
  Report Type: Spontaneous
  Country: US (occurrence: US)
  Receive Date: 20241213
  Receipt Date: 20241226
  Transmission Date: 20250115
  Serious: Yes (Other)
  Sender: BAYER HEALTHCARE PHARMACEUTICALS INC.
  Company Number: US-BAYER-2024A173537

PATIENT

DRUGS (2)
  1. KERENDIA [Suspect]
     Active Substance: FINERENONE
     Dosage: 10MG FOR A MONTH
  2. KERENDIA [Suspect]
     Active Substance: FINERENONE
     Dosage: 20 MG FOR THE NEXT 2 MONTHS

REACTIONS (2)
  - Glomerular filtration rate decreased [None]
  - Blood creatinine increased [None]
